FAERS Safety Report 18279843 (Version 5)
Quarter: 2020Q4

REPORT INFORMATION
  Report Type: Report from Study
  Country: US (occurrence: US)
  Receive Date: 20200917
  Receipt Date: 20201231
  Transmission Date: 20210113
  Serious: Yes (Hospitalization, Other)
  Sender: FDA-Public Use
  Company Number: US-GLAXOSMITHKLINE-US2020AMR092297

PATIENT
  Sex: Female

DRUGS (6)
  1. NIRAPARIB [Suspect]
     Active Substance: NIRAPARIB
     Dosage: 100 MG, QD
     Route: 065
     Dates: start: 20200615, end: 202009
  2. NIRAPARIB [Suspect]
     Active Substance: NIRAPARIB
     Indication: OVARIAN CANCER
     Dosage: 200 MG, DAILY
     Route: 065
     Dates: start: 20200516, end: 20200528
  3. NIRAPARIB [Suspect]
     Active Substance: NIRAPARIB
     Dosage: 100 MG, QD
     Route: 065
     Dates: start: 20200928
  4. NIRAPARIB [Suspect]
     Active Substance: NIRAPARIB
     Dosage: 100 MG, QD
  5. NIRAPARIB [Suspect]
     Active Substance: NIRAPARIB
     Dosage: 100 MG, QD
  6. NIRAPARIB [Suspect]
     Active Substance: NIRAPARIB
     Dosage: 100 MG, QD
     Route: 065

REACTIONS (14)
  - Vomiting [Unknown]
  - Constipation [Recovered/Resolved]
  - Intestinal obstruction [Unknown]
  - Fatigue [Not Recovered/Not Resolved]
  - Product dose omission issue [Unknown]
  - Abdominal pain upper [Not Recovered/Not Resolved]
  - Hot flush [Unknown]
  - Nausea [Unknown]
  - Abdominal discomfort [Not Recovered/Not Resolved]
  - Off label use [Unknown]
  - Blood pressure increased [Recovered/Resolved]
  - Taste disorder [Unknown]
  - Illness [Unknown]
  - Decreased appetite [Recovered/Resolved]
